FAERS Safety Report 13550312 (Version 1)
Quarter: 2017Q2

REPORT INFORMATION
  Report Type: Spontaneous
  Country: HU (occurrence: HU)
  Receive Date: 20170516
  Receipt Date: 20170516
  Transmission Date: 20170830
  Serious: Yes (Other)
  Sender: FDA-Public Use
  Company Number: HU-TEVA-766298ACC

PATIENT
  Age: 56 Year
  Sex: Female

DRUGS (8)
  1. AMLODIPINE [Concomitant]
     Active Substance: AMLODIPINE BESYLATE
     Dosage: 5 MILLIGRAM DAILY;
  2. PERINDOPRIL [Concomitant]
     Active Substance: PERINDOPRIL
     Dosage: 8 MILLIGRAM DAILY;
  3. MYOQINON [Concomitant]
  4. CALCIUM [Concomitant]
     Active Substance: CALCIUM
     Dosage: 1000 MILLIGRAM DAILY;
  5. SELENIUM [Concomitant]
     Active Substance: SELENIUM
     Dosage: 100 MICROGRAM DAILY;
  6. NEBIVOLOL TEVA 5 MG TABLET [Suspect]
     Active Substance: NEBIVOLOL
     Indication: EXTRASYSTOLES
     Dosage: 2.5 MILLIGRAM DAILY;
     Dates: start: 201612, end: 201701
  7. VITAMIN C [Concomitant]
     Active Substance: ASCORBIC ACID
     Dosage: 500 MILLIGRAM DAILY;
  8. CHOLECALCIFEROL [Concomitant]
     Active Substance: CHOLECALCIFEROL
     Indication: OSTEOPOROSIS PROPHYLAXIS
     Dosage: 1000 IU (INTERNATIONAL UNIT) DAILY;

REACTIONS (10)
  - Dyspnoea [Recovered/Resolved]
  - Blepharitis [Recovered/Resolved]
  - Blood pressure decreased [Recovered/Resolved]
  - Asthma [Recovered/Resolved]
  - Heart rate decreased [Recovered/Resolved]
  - Otitis externa [Recovered/Resolved with Sequelae]
  - Drug ineffective for unapproved indication [Unknown]
  - Product use in unapproved indication [Recovered/Resolved]
  - Fatigue [Recovered/Resolved]
  - Contraindicated product administered [Recovered/Resolved]

NARRATIVE: CASE EVENT DATE: 201612
